FAERS Safety Report 8025847-4 (Version None)
Quarter: 2012Q1

REPORT INFORMATION
  Report Type: 
  Country: None (occurrence: None)
  Receive Date: 20120105
  Receipt Date: 20110411
  Transmission Date: 20120608
  Serious: No
  Sender: FDA-Public Use
  Company Number: US-ABBOTT-11P-163-0718805-00

PATIENT
  Sex: Female
  Weight: 63.56 kg

DRUGS (6)
  1. CYTOMEL [Concomitant]
     Indication: HYPOTHYROIDISM
     Dates: start: 20100301
  2. MAGNESIUM CITRATE [Concomitant]
     Indication: PRODUCT USED FOR UNKNOWN INDICATION
  3. FISH OIL [Concomitant]
     Indication: PRODUCT USED FOR UNKNOWN INDICATION
  4. SYNTHROID [Suspect]
     Indication: HYPOTHYROIDISM
     Dates: start: 20110301
  5. VITAMIN D [Concomitant]
     Indication: PRODUCT USED FOR UNKNOWN INDICATION
  6. VITAMIN B COMPLEX CAP [Concomitant]
     Indication: PRODUCT USED FOR UNKNOWN INDICATION

REACTIONS (4)
  - ABDOMINAL DISTENSION [None]
  - WEIGHT INCREASED [None]
  - ABDOMINAL PAIN UPPER [None]
  - COELIAC DISEASE [None]
